FAERS Safety Report 10440790 (Version 1)
Quarter: 2014Q3

REPORT INFORMATION
  Report Type: Spontaneous
  Country: US (occurrence: None)
  Receive Date: 20140908
  Receipt Date: 20140908
  Transmission Date: 20150326
  Serious: Yes (Hospitalization)
  Sender: FDA-Public Use
  Company Number: None

PATIENT
  Age: 16 Year
  Sex: Female

DRUGS (1)
  1. PHENERGAN [Suspect]
     Active Substance: PROMETHAZINE HYDROCHLORIDE
     Indication: PROCEDURAL NAUSEA
     Dosage: 12.5 MG ?PRN EVERY 6 HOURS?ORAL??THERAPY ?8-21-14 TOOK ONE DOSE
     Dates: start: 20140821

REACTIONS (1)
  - Convulsion [None]

NARRATIVE: CASE EVENT DATE: 20140821
